FAERS Safety Report 7998053-7 (Version None)
Quarter: 2011Q4

REPORT INFORMATION
  Report Type: 
  Country: None (occurrence: None)
  Receive Date: 20111221
  Receipt Date: 20101211
  Transmission Date: 20120403
  Serious: No
  Sender: FDA-Public Use
  Company Number: US-GLAXOSMITHKLINE-A0899768A

PATIENT
  Age: 72 Year
  Sex: Male

DRUGS (3)
  1. LOVAZA [Suspect]
     Indication: CARDIAC DISORDER
     Route: 048
  2. CENTRUM SILVER [Concomitant]
     Indication: MEDICAL DIET
     Route: 048
  3. VITAMIN D [Concomitant]

REACTIONS (1)
  - THERAPEUTIC RESPONSE UNEXPECTED [None]
